FAERS Safety Report 4266733-5 (Version None)
Quarter: 2004Q1

REPORT INFORMATION
  Report Type: 
  Country: None (occurrence: None)
  Receive Date: 20040108
  Receipt Date: 20030827
  Transmission Date: 20041129
  Serious: Yes (Other)
  Sender: FDA-Public Use
  Company Number: GB-GLAXOSMITHKLINE-B0307808A

PATIENT
  Age: 16 Year
  Sex: Female

DRUGS (2)
  1. SEROXAT [Suspect]
     Dosage: 20MG EIGHT TIMES PER DAY
     Route: 048
  2. EFFEXOR [Concomitant]
     Route: 065

REACTIONS (3)
  - CONVULSION [None]
  - OVERDOSE [None]
  - VITREOUS FLOATERS [None]
